FAERS Safety Report 4397663-6 (Version None)
Quarter: 2004Q3

REPORT INFORMATION
  Report Type: 
  Country: None (occurrence: None)
  Receive Date: 20040713
  Receipt Date: 20040427
  Transmission Date: 20050211
  Serious: Yes (Hospitalization, Other)
  Sender: FDA-Public Use
  Company Number: THQ2002A01304

PATIENT
  Age: 73 Year
  Sex: Male

DRUGS (9)
  1. LANSOPRAZOLE [Suspect]
     Dosage: 15 MG (1D); PER ORAL
     Route: 048
     Dates: start: 20020301, end: 20020701
  2. PROZAC (LUOXETINE HYDROCHLORIDE) [Concomitant]
     Dosage: SEE IMAGE
     Route: 048
     Dates: start: 20020301, end: 20020719
  3. ASPIRIN [Concomitant]
  4. ZOLOFT [Concomitant]
  5. SOTALEX (SOTALOL HYDROCHLORIDE) (TABELTS) [Concomitant]
  6. TICLID (TICLOPIDINE HYDROCHLORIDE)  (TABLETS) [Concomitant]
  7. SIMVASTATIN (SMVASTATIN) (TABLETS) [Concomitant]
  8. TRIMETAZIDINE (TRIMETAZIDINE) (TABLETS) [Concomitant]
  9. MODOPAR   (MADOPAR) [Suspect]
     Dosage: 187.5MG 962.5)  PO
     Route: 048

REACTIONS (11)
  - ANXIETY [None]
  - APATHY [None]
  - DEPRESSION [None]
  - DIFFICULTY IN WALKING [None]
  - DRUG INTERACTION [None]
  - ENCEPHALOPATHY [None]
  - EXTRAPYRAMIDAL DISORDER [None]
  - MENTAL IMPAIRMENT [None]
  - MYOCLONUS [None]
  - PARKINSON'S DISEASE [None]
  - PSYCHOMOTOR RETARDATION [None]
